FAERS Safety Report 8046797 (Version 2)
Quarter: 2013Q3

REPORT INFORMATION
  Report Type: Spontaneous
  Country: None (occurrence: None)
  Receive Date: 20110701
  Receipt Date: 20130715
  Transmission Date: 20140515
  Serious: Yes (Other)
  Sender: FDA-Public Use
  Company Number: AUR-APL-2011-03688

PATIENT
  Age: 50 Year
  Sex: Female

DRUGS (3)
  1. LOSARTAN POTASSIUM [Suspect]
     Indication: PRODUCT USED FOR UNKNOWN INDICATION
     Dates: start: 2010
  2. RAMILICH [Suspect]
     Indication: PRODUCT USED FOR UNKNOWN INDICATION
     Dates: start: 2010, end: 2010
  3. BUDESONIDE/ FORMOTEROL FUMARATE (BUDESONIDE W/ FORMOTEROL FUMARATE) [Concomitant]

REACTIONS (5)
  - Bronchospasm [None]
  - General physical health deterioration [None]
  - Respiratory tract infection viral [None]
  - Toxicity to various agents [None]
  - Obstructive airways disorder [None]
